FAERS Safety Report 21806477 (Version 2)
Quarter: 2023Q1

REPORT INFORMATION
  Report Type: Spontaneous
  Country: US (occurrence: US)
  Receive Date: 20230102
  Receipt Date: 20230201
  Transmission Date: 20230418
  Serious: Yes (Other)
  Sender: FDA-Public Use
  Company Number: US-BIOVITRUM-2022US15968

PATIENT
  Age: 1 Year
  Sex: Male

DRUGS (3)
  1. SYNAGIS [Suspect]
     Active Substance: PALIVIZUMAB
     Indication: Chronic respiratory failure
     Dates: start: 202211
  2. SYNAGIS [Suspect]
     Active Substance: PALIVIZUMAB
     Indication: Hypoxia
  3. SYNAGIS [Suspect]
     Active Substance: PALIVIZUMAB
     Indication: Hypercapnia

REACTIONS (5)
  - Hypoxia [Recovered/Resolved]
  - Illness [Recovered/Resolved]
  - Wheezing [Recovered/Resolved]
  - Rhinorrhoea [Recovered/Resolved]
  - Pyrexia [Recovered/Resolved]

NARRATIVE: CASE EVENT DATE: 20230115
